FAERS Safety Report 23935698 (Version 2)
Quarter: 2024Q2

REPORT INFORMATION
  Report Type: Spontaneous
  Country: US (occurrence: US)
  Receive Date: 20240604
  Receipt Date: 20240621
  Transmission Date: 20240716
  Serious: Yes (Other)
  Sender: FDA-Public Use
  Company Number: US-TEVA-VS-3204619

PATIENT
  Age: 56 Year
  Sex: Male

DRUGS (1)
  1. ACETAZOLAMIDE [Suspect]
     Active Substance: ACETAZOLAMIDE
     Indication: Hypobarism
     Route: 065

REACTIONS (4)
  - Hypovolaemia [Unknown]
  - Acute kidney injury [Unknown]
  - Exertional rhabdomyolysis [Unknown]
  - Dehydration [Unknown]
